FAERS Safety Report 10498648 (Version 1)
Quarter: 2014Q4

REPORT INFORMATION
  Report Type: Spontaneous
  Country: US (occurrence: US)
  Receive Date: 20141006
  Receipt Date: 20141006
  Transmission Date: 20150528
  Serious: Yes (Other)
  Sender: FDA-Public Use
  Company Number: US-ASTRAZENECA-2014SE74526

PATIENT
  Age: 86 Year

DRUGS (2)
  1. HORMONAL THERAPY [Concomitant]
  2. FASLODEX [Suspect]
     Active Substance: FULVESTRANT
     Indication: BREAST CANCER METASTATIC
     Route: 030
     Dates: start: 201406

REACTIONS (2)
  - Hot flush [Unknown]
  - Disease progression [Unknown]

NARRATIVE: CASE EVENT DATE: 2014
